FAERS Safety Report 10023040 (Version 4)
Quarter: 2015Q2

REPORT INFORMATION
  Report Type: Spontaneous
  Country: US (occurrence: US)
  Receive Date: 20140319
  Receipt Date: 20150630
  Transmission Date: 20150821
  Serious: Yes (Hospitalization, Disabling, Other)
  Sender: FDA-Public Use
  Company Number: US-SANOFI-AVENTIS-2012SA066444

PATIENT
  Age: 58 Year
  Sex: Female

DRUGS (8)
  1. COUMADIN [Concomitant]
     Active Substance: WARFARIN SODIUM
  2. ZOCOR [Concomitant]
     Active Substance: SIMVASTATIN
  3. NEXIUM [Concomitant]
     Active Substance: ESOMEPRAZOLE MAGNESIUM
  4. ASPIRIN. [Concomitant]
     Active Substance: ASPIRIN
  5. LASIX [Concomitant]
     Active Substance: FUROSEMIDE
  6. PLAVIX [Suspect]
     Active Substance: CLOPIDOGREL BISULFATE
     Indication: MYOCARDIAL INFARCTION
     Route: 048
     Dates: start: 20071016, end: 20071019
  7. NORVASC [Concomitant]
     Active Substance: AMLODIPINE BESYLATE
  8. NEO-SYNEPHRINE [Concomitant]
     Active Substance: PHENYLEPHRINE HYDROCHLORIDE

REACTIONS (13)
  - Tension [Not Recovered/Not Resolved]
  - Anhedonia [Not Recovered/Not Resolved]
  - Loss of employment [Not Recovered/Not Resolved]
  - Thrombotic thrombocytopenic purpura [Recovered/Resolved]
  - Blood disorder [Recovered/Resolved]
  - Pain [Not Recovered/Not Resolved]
  - Social problem [Not Recovered/Not Resolved]
  - Economic problem [Not Recovered/Not Resolved]
  - Psychological trauma [Not Recovered/Not Resolved]
  - Deformity [Not Recovered/Not Resolved]
  - Multiple injuries [Not Recovered/Not Resolved]
  - Physical disability [Recovered/Resolved]
  - Myocardial infarction [Recovered/Resolved]

NARRATIVE: CASE EVENT DATE: 20071016
